FAERS Safety Report 5450042-2 (Version None)
Quarter: 2007Q3

REPORT INFORMATION
  Report Type: 
  Country: None (occurrence: None)
  Receive Date: 20070912
  Receipt Date: 20070831
  Transmission Date: 20080115
  Serious: Yes (Hospitalization)
  Sender: FDA-Public Use
  Company Number: US-AVENTIS-200716251US

PATIENT
  Age: 45 Year
  Sex: Female

DRUGS (18)
  1. LANTUS [Suspect]
     Route: 051
     Dates: end: 20070801
  2. LANTUS [Suspect]
     Route: 051
     Dates: end: 20070801
  3. LANTUS [Suspect]
     Route: 051
     Dates: start: 20070801
  4. LANTUS [Suspect]
     Route: 051
     Dates: start: 20070801
  5. HUMALOG [Concomitant]
     Dosage: DOSE: 3, SLIDING SCALE
     Route: 051
  6. HUMALOG [Concomitant]
     Dosage: DOSE: 4 AT LUNCH, SLIDING SCALE
     Route: 051
  7. HUMALOG [Concomitant]
     Dosage: DOSE: 5, SLIDING SCALE
     Route: 051
  8. TOBRAXIA [Concomitant]
     Dosage: DOSE: UNK
     Route: 047
  9. SYNTHROID [Concomitant]
     Dosage: DOSE: UNK
  10. ACTONEL [Concomitant]
     Dosage: DOSE: UNK
  11. MORPHINE [Concomitant]
     Dosage: DOSE: UNK
  12. LASIX [Concomitant]
     Dosage: DOSE: UNK
  13. PERCOCET                           /00867901/ [Concomitant]
     Dosage: DOSE: UNK
  14. LYRICA [Concomitant]
     Dosage: DOSE: UNK
  15. TYLENOL (CAPLET) [Concomitant]
     Dosage: DOSE: UNK
  16. NORVASC [Concomitant]
     Dosage: DOSE: UNK
  17. VASOTEC                            /00935901/ [Concomitant]
     Dosage: DOSE: UNK
  18. ARANESP [Concomitant]
     Dosage: DOSE: UNK
     Route: 051

REACTIONS (11)
  - BLOOD GLUCOSE DECREASED [None]
  - BLOOD POTASSIUM INCREASED [None]
  - DEPRESSED LEVEL OF CONSCIOUSNESS [None]
  - DIABETES MELLITUS INADEQUATE CONTROL [None]
  - HYPERGLYCAEMIA [None]
  - HYPOGLYCAEMIA [None]
  - MUSCLE TWITCHING [None]
  - PNEUMONIA [None]
  - PYREXIA [None]
  - STAPHYLOCOCCAL INFECTION [None]
  - VISUAL ACUITY REDUCED [None]
